FAERS Safety Report 20643937 (Version 2)
Quarter: 2022Q2

REPORT INFORMATION
  Report Type: Spontaneous
  Country: CA (occurrence: None)
  Receive Date: 20220328
  Receipt Date: 20220406
  Transmission Date: 20220721
  Serious: Yes (Other)
  Sender: FDA-Public Use
  Company Number: CA-ROCHE-3057293

PATIENT
  Sex: Female

DRUGS (1)
  1. RITUXIMAB [Suspect]
     Active Substance: RITUXIMAB
     Indication: Product used for unknown indication
     Route: 065

REACTIONS (6)
  - Condition aggravated [Unknown]
  - Condition aggravated [Unknown]
  - Multiple sclerosis [Not Recovered/Not Resolved]
  - Genito-pelvic pain/penetration disorder [Not Recovered/Not Resolved]
  - Nervousness [Unknown]
  - Tinnitus [Unknown]
